FAERS Safety Report 11463110 (Version 4)
Quarter: 2015Q4

REPORT INFORMATION
  Report Type: Report from Study
  Country: US (occurrence: US)
  Receive Date: 20150905
  Receipt Date: 20151027
  Transmission Date: 20160304
  Serious: No
  Sender: FDA-Public Use
  Company Number: PHEH2015US017105

PATIENT
  Sex: Female
  Weight: 89.8 kg

DRUGS (1)
  1. GILENYA [Suspect]
     Active Substance: FINGOLIMOD HYDROCHLORIDE
     Indication: RELAPSING-REMITTING MULTIPLE SCLEROSIS
     Dosage: 0.5 MG, QD
     Route: 048
     Dates: start: 20150728

REACTIONS (5)
  - Palpitations [Recovering/Resolving]
  - Blood pressure increased [Unknown]
  - Diabetes mellitus [Unknown]
  - Sciatica [Unknown]
  - Dyspnoea [Recovering/Resolving]
